FAERS Safety Report 22380056 (Version 1)
Quarter: 2023Q2

REPORT INFORMATION
  Report Type: Spontaneous
  Country: AR (occurrence: AR)
  Receive Date: 20230529
  Receipt Date: 20230529
  Transmission Date: 20230721
  Serious: Yes (Other)
  Sender: FDA-Public Use
  Company Number: AR-PFIZER INC-PV202300091064

PATIENT
  Sex: Female

DRUGS (2)
  1. CEFTAROLINE FOSAMIL [Suspect]
     Active Substance: CEFTAROLINE FOSAMIL
     Indication: Cellulitis staphylococcal
     Dosage: UNK
  2. DAPTOMYCIN [Concomitant]
     Active Substance: DAPTOMYCIN

REACTIONS (1)
  - Leukopenia [Unknown]
